FAERS Safety Report 9508716 (Version 2)
Quarter: 2013Q3

REPORT INFORMATION
  Report Type: Spontaneous
  Country: FR (occurrence: FR)
  Receive Date: 20130909
  Receipt Date: 20130910
  Transmission Date: 20140515
  Serious: Yes (Hospitalization)
  Sender: FDA-Public Use
  Company Number: FR-GLAXOSMITHKLINE-B0920623A

PATIENT
  Age: 27 Year
  Sex: Female

DRUGS (5)
  1. AZANTAC [Suspect]
     Indication: PREMEDICATION
     Dosage: 50MG SINGLE DOSE
     Route: 042
     Dates: start: 20130704, end: 20130704
  2. PACLITAXEL [Suspect]
     Indication: BREAST CANCER
     Dosage: 161MG SINGLE DOSE
     Route: 042
     Dates: start: 20130704, end: 20130704
  3. DEXAMETHASONE [Suspect]
     Indication: PREMEDICATION
     Dosage: 8MG SINGLE DOSE
     Route: 042
     Dates: start: 20130704, end: 20130704
  4. POLARAMINE [Suspect]
     Indication: PREMEDICATION
     Dosage: 5MG SEE DOSAGE TEXT
     Route: 042
     Dates: start: 20130704, end: 20130704
  5. AVASTIN (BEVACIZUMAB) [Concomitant]
     Indication: BREAST CANCER
     Route: 042
     Dates: start: 20130704, end: 20130704

REACTIONS (4)
  - Erythema [Recovered/Resolved]
  - Chest discomfort [Recovered/Resolved]
  - Dyspnoea [Recovered/Resolved]
  - Hot flush [Recovered/Resolved]
